FAERS Safety Report 8613126-3 (Version None)
Quarter: 2012Q3

REPORT INFORMATION
  Report Type: 
  Country: None (occurrence: None)
  Receive Date: 20120822
  Receipt Date: 20120730
  Transmission Date: 20120928
  Serious: Yes (Other)
  Sender: FDA-Public Use
  Company Number: JP-009507513-1207JPN012681

PATIENT

DRUGS (6)
  1. TELAVIC [Suspect]
     Indication: HEPATITIS C
     Route: 048
     Dates: start: 20120514, end: 20120614
  2. REBETOL [Suspect]
     Indication: HEPATITIS C
     Route: 048
     Dates: start: 20120514, end: 20120618
  3. ALLEGRA [Concomitant]
     Route: 048
     Dates: start: 20120518, end: 20120618
  4. URSO 250 [Concomitant]
     Indication: HEPATITIS C
     Route: 048
  5. PEG-INTRON [Suspect]
     Indication: HEPATITIS C
     Dosage: 1.5MCG/KG/WEEK
     Route: 058
     Dates: start: 20120514, end: 20120618
  6. EPINASTINE HYDROCHLORIDE [Concomitant]
     Indication: DRY SKIN
     Route: 048

REACTIONS (1)
  - MALAISE [None]
